FAERS Safety Report 24790123 (Version 1)
Quarter: 2024Q4

REPORT INFORMATION
  Report Type: Spontaneous
  Country: JP (occurrence: JP)
  Receive Date: 20241230
  Receipt Date: 20241230
  Transmission Date: 20250115
  Serious: Yes (Hospitalization)
  Sender: AMGEN
  Company Number: JP-AMGEN-JPNSP2024253587

PATIENT

DRUGS (3)
  1. REPATHA [Suspect]
     Active Substance: EVOLOCUMAB
     Indication: Type IIa hyperlipidaemia
     Dosage: 420 MILLIGRAM, Q2WK
     Route: 058
  2. LEQVIO [Concomitant]
     Active Substance: INCLISIRAN SODIUM
  3. LEQVIO [Concomitant]
     Active Substance: INCLISIRAN SODIUM

REACTIONS (2)
  - Loss of consciousness [Unknown]
  - Off label use [Unknown]
